FAERS Safety Report 4781100-3 (Version None)
Quarter: 2005Q3

REPORT INFORMATION
  Report Type: 
  Country: None (occurrence: None)
  Receive Date: 20050926
  Receipt Date: 20050912
  Transmission Date: 20060218
  Serious: Yes (Hospitalization, Disabling)
  Sender: FDA-Public Use
  Company Number: 2005094672

PATIENT
  Age: 62 Year
  Sex: Male

DRUGS (1)
  1. VIAGRA [Suspect]
     Indication: ILL-DEFINED DISORDER
     Dosage: (100 MG), ORAL
     Route: 048
     Dates: start: 20050120

REACTIONS (3)
  - BLINDNESS UNILATERAL [None]
  - RETINAL DISORDER [None]
  - VISION BLURRED [None]
